FAERS Safety Report 8373061-5 (Version None)
Quarter: 2012Q2

REPORT INFORMATION
  Report Type: 
  Country: None (occurrence: None)
  Receive Date: 20120521
  Receipt Date: 20120516
  Transmission Date: 20120825
  Serious: Yes (Other)
  Sender: FDA-Public Use
  Company Number: PHHY2012BR042597

PATIENT
  Age: 60 Year
  Sex: Female

DRUGS (1)
  1. RASILEZ [Suspect]

REACTIONS (3)
  - RENAL FUNCTION TEST ABNORMAL [None]
  - RENAL DISORDER [None]
  - AORTIC VALVE INCOMPETENCE [None]
